FAERS Safety Report 20617658 (Version 2)
Quarter: 2022Q2

REPORT INFORMATION
  Report Type: Report from Study
  Country: TW (occurrence: TW)
  Receive Date: 20220321
  Receipt Date: 20220429
  Transmission Date: 20220721
  Serious: Yes (Death)
  Sender: FDA-Public Use
  Company Number: TW-NOVARTISPH-NVSC2022TW061270

PATIENT
  Age: 74 Year
  Sex: Female
  Weight: 40 kg

DRUGS (2)
  1. CAPMATINIB [Suspect]
     Active Substance: CAPMATINIB
     Indication: Non-small cell lung cancer
     Dosage: UNK
     Route: 065
  2. CAPMATINIB [Suspect]
     Active Substance: CAPMATINIB
     Dosage: UNK
     Route: 048
     Dates: start: 20210406, end: 20220217

REACTIONS (1)
  - Death [Fatal]
